FAERS Safety Report 14557634 (Version 1)
Quarter: 2018Q1

REPORT INFORMATION
  Report Type: Spontaneous
  Country: GB (occurrence: GB)
  Receive Date: 20180221
  Receipt Date: 20180221
  Transmission Date: 20180509
  Serious: Yes (Hospitalization)
  Sender: FDA-Public Use
  Company Number: GB-VELOXIS PHARMACEUTICALS-2042401

PATIENT
  Age: 59 Year
  Sex: Male
  Weight: 78 kg

DRUGS (21)
  1. WARFARIN [Concomitant]
     Active Substance: WARFARIN
  2. ATORVASTATIN [Concomitant]
     Active Substance: ATORVASTATIN
  3. HYOSCINE BUTYLBROMIDE [Concomitant]
     Active Substance: BUTYLSCOPOLAMINE
  4. CO-AMOXICLAV [Concomitant]
     Active Substance: AMOXICILLIN\CLAVULANIC ACID
  5. IRBESARTAN. [Concomitant]
     Active Substance: IRBESARTAN
  6. GLYCERYL TRINITRATE [Concomitant]
     Active Substance: NITROGLYCERIN
  7. DIHYDROCODEINE [Concomitant]
     Active Substance: DIHYDROCODEINE
  8. LATANOPROST. [Concomitant]
     Active Substance: LATANOPROST
  9. FUROSEMIDE. [Concomitant]
     Active Substance: FUROSEMIDE
  10. PHOSEX [Concomitant]
  11. FERROUS SULFATE. [Concomitant]
     Active Substance: FERROUS SULFATE
  12. ISOSORBIDE MONONITRATE. [Concomitant]
     Active Substance: ISOSORBIDE MONONITRATE
  13. TIMOLOL. [Concomitant]
     Active Substance: TIMOLOL
  14. OXYBUTYNIN. [Concomitant]
     Active Substance: OXYBUTYNIN CHLORIDE
  15. RANITIDINE. [Concomitant]
     Active Substance: RANITIDINE
  16. PREDNISOLONE. [Concomitant]
     Active Substance: PREDNISOLONE
  17. ENVARSUS XR [Suspect]
     Active Substance: TACROLIMUS
     Indication: PRODUCT USED FOR UNKNOWN INDICATION
  18. CLARITHROMYCIN. [Suspect]
     Active Substance: CLARITHROMYCIN
     Route: 042
     Dates: start: 20180116, end: 20180118
  19. PARACETAMOL [Concomitant]
     Active Substance: ACETAMINOPHEN
  20. BISOPROLOL FUMARATE. [Concomitant]
     Active Substance: BISOPROLOL FUMARATE
  21. DARBEPOETIN ALFA [Concomitant]
     Active Substance: DARBEPOETIN ALFA

REACTIONS (4)
  - Labelled drug-drug interaction medication error [Unknown]
  - Toxicity to various agents [Recovering/Resolving]
  - Acute kidney injury [Recovering/Resolving]
  - Blood creatine increased [Unknown]

NARRATIVE: CASE EVENT DATE: 20180119
